FAERS Safety Report 4955752-9 (Version None)
Quarter: 2006Q1

REPORT INFORMATION
  Report Type: 
  Country: None (occurrence: None)
  Receive Date: 20060323
  Receipt Date: 20060315
  Transmission Date: 20060701
  Serious: Yes (Other)
  Sender: FDA-Public Use
  Company Number: GBWYE481117MAR06

PATIENT
  Sex: Female

DRUGS (1)
  1. TAZOCIN                       (PIPERACILLIN/TAZOBACTAM, INJECTION) [Suspect]

REACTIONS (1)
  - CLOSTRIDIAL INFECTION [None]
